FAERS Safety Report 16539848 (Version 1)
Quarter: 2019Q3

REPORT INFORMATION
  Report Type: Spontaneous
  Country: IL (occurrence: IL)
  Receive Date: 20190708
  Receipt Date: 20190708
  Transmission Date: 20191004
  Serious: Yes (Hospitalization)
  Sender: FDA-Public Use
  Company Number: IL-TEVA-2019-IL-1074985

PATIENT
  Age: 26 Year
  Sex: Female

DRUGS (10)
  1. IRINOTECAN [Suspect]
     Active Substance: IRINOTECAN
     Indication: COLORECTAL CANCER METASTATIC
     Dosage: 279MG EVERY TWO WEEKS; LAST DOSE PRIOR TO AE: 10-JUN-2019
     Route: 042
     Dates: start: 20190303, end: 20190610
  2. PRAMIN [Concomitant]
     Dates: start: 20190324
  3. BEVACIZUMAB. [Suspect]
     Active Substance: BEVACIZUMAB
     Indication: COLORECTAL CANCER METASTATIC
     Dosage: 238MG EVERY TWO WEEKS; LAST DOSE PRIOR TO AE: 10-JUN-2019
     Route: 042
     Dates: start: 20190324, end: 20190610
  4. LEUCOVORIN. [Suspect]
     Active Substance: LEUCOVORIN
     Indication: COLORECTAL CANCER METASTATIC
     Dosage: 619MG EVERY TWO WEEKS; LAST DOSE PRIOR TO AE: 10-JUN-2019
     Route: 042
     Dates: start: 20190303, end: 20190610
  5. DECAPEPTYL [Concomitant]
     Dates: start: 2018
  6. 5-FLUOROURACIL [Suspect]
     Active Substance: FLUOROURACIL
     Indication: COLORECTAL CANCER METASTATIC
     Dosage: 619 MG, EVERY TWO WEEKS
     Route: 040
     Dates: start: 20190303, end: 20190610
  7. 5-FLUOROURACIL [Suspect]
     Active Substance: FLUOROURACIL
     Dosage: 3715MG EVERY TWO WEEKS; LAST DOSE PRIOR TO AE: 10-JUN-2019
     Route: 042
     Dates: start: 20190303, end: 20190610
  8. IMODIUM [Concomitant]
     Active Substance: LOPERAMIDE HYDROCHLORIDE
     Dates: start: 20190227
  9. BBI608 [Suspect]
     Active Substance: NAPABUCASIN
     Indication: COLORECTAL CANCER METASTATIC
     Dosage: 480 MILLIGRAM DAILY; 240 MG, BID; LAST DOSE PRIOR TO AE  23-JUN-2019
     Route: 048
     Dates: start: 20190227, end: 20190623
  10. NEULASTIM [Concomitant]
     Active Substance: PEGFILGRASTIM
     Dates: start: 20190324

REACTIONS (1)
  - Herpes zoster [Recovered/Resolved]

NARRATIVE: CASE EVENT DATE: 20190620
